FAERS Safety Report 20088683 (Version 3)
Quarter: 2021Q4

REPORT INFORMATION
  Report Type: Spontaneous
  Country: US (occurrence: US)
  Receive Date: 20211119
  Receipt Date: 20211222
  Transmission Date: 20220303
  Serious: Yes (Hospitalization, Other)
  Sender: FDA-Public Use
  Company Number: US-BIOVITRUM-2021US10734

PATIENT
  Age: 2 Month
  Sex: Female
  Weight: 5 kg

DRUGS (3)
  1. SYNAGIS [Suspect]
     Active Substance: PALIVIZUMAB
     Indication: Premature baby
     Route: 030
     Dates: start: 20210824
  2. SYNAGIS [Suspect]
     Active Substance: PALIVIZUMAB
     Dosage: (100MG/ML), (50MG/0.5ML)
     Route: 030
     Dates: start: 202110
  3. SYNAGIS [Suspect]
     Active Substance: PALIVIZUMAB
     Dosage: (100MG/ML)
     Route: 030
     Dates: start: 20211123

REACTIONS (7)
  - Respiratory syncytial virus infection [Recovered/Resolved]
  - Gastrooesophageal reflux disease [Unknown]
  - Bronchiolitis [Recovered/Resolved]
  - Haemangioma [Recovering/Resolving]
  - Cough [Recovering/Resolving]
  - Nasal congestion [Recovering/Resolving]
  - Dyspnoea [Unknown]

NARRATIVE: CASE EVENT DATE: 20210824
